FAERS Safety Report 10349082 (Version 5)
Quarter: 2014Q4

REPORT INFORMATION
  Report Type: Report from Study
  Country: RS (occurrence: RS)
  Receive Date: 20140729
  Receipt Date: 20141207
  Transmission Date: 20150528
  Serious: Yes (Hospitalization, Other)
  Sender: FDA-Public Use
  Company Number: RS-ROCHE-1442537

PATIENT
  Sex: Female
  Weight: 78 kg

DRUGS (2)
  1. ARIMIDEX [Concomitant]
     Active Substance: ANASTROZOLE
     Indication: BREAST CANCER
     Route: 065
  2. HERCEPTIN [Suspect]
     Active Substance: TRASTUZUMAB
     Indication: BREAST CANCER
     Dosage: 6MG PER KG OF BODY MASS
     Route: 042
     Dates: start: 201402, end: 20140606

REACTIONS (6)
  - Cardiomyopathy [Not Recovered/Not Resolved]
  - Aortic valve incompetence [Unknown]
  - Ejection fraction decreased [Recovering/Resolving]
  - Mitral valve incompetence [Not Recovered/Not Resolved]
  - Congestive cardiomyopathy [Unknown]
  - Diastolic dysfunction [Not Recovered/Not Resolved]

NARRATIVE: CASE EVENT DATE: 20140612
